FAERS Safety Report 4902379-0 (Version None)
Quarter: 2006Q1

REPORT INFORMATION
  Report Type: 
  Country: None (occurrence: None)
  Receive Date: 20060203
  Receipt Date: 20060203
  Transmission Date: 20060701
  Serious: No
  Sender: FDA-Public Use
  Company Number: None

PATIENT
  Age: 41 Year
  Sex: Female
  Weight: 95.2554 kg

DRUGS (1)
  1. CLINDAMYCIN [Suspect]
     Indication: DENTAL CARE
     Dosage: 150 MG 3 TIMES A DAY ORALLY
     Route: 048
     Dates: start: 20051206, end: 20051218

REACTIONS (8)
  - ANXIETY [None]
  - BURNING SENSATION [None]
  - DYSGEUSIA [None]
  - GLOSSODYNIA [None]
  - LIP DISCOLOURATION [None]
  - ORAL DISCOMFORT [None]
  - STRESS [None]
  - TONGUE DISCOLOURATION [None]
